FAERS Safety Report 18161445 (Version 1)
Quarter: 2020Q3

REPORT INFORMATION
  Report Type: Spontaneous
  Country: FR (occurrence: FR)
  Receive Date: 20200818
  Receipt Date: 20200818
  Transmission Date: 20201103
  Serious: Yes (Other)
  Sender: FDA-Public Use
  Company Number: FR-BRISTOL-MYERS SQUIBB COMPANY-BMS-2020-064060

PATIENT
  Age: 80 Year
  Sex: Male
  Weight: 92 kg

DRUGS (14)
  1. COUMADINE [Suspect]
     Active Substance: WARFARIN SODIUM
     Dosage: TAKING ONE AND A HALF THEN A THREE?QUARTER THEN A TABLET
     Route: 048
  2. FUROSEMIDE. [Concomitant]
     Active Substance: FUROSEMIDE
     Indication: PRODUCT USED FOR UNKNOWN INDICATION
     Dosage: 20 MILLIGRAM
     Route: 065
  3. IRBESARTAN. [Concomitant]
     Active Substance: IRBESARTAN
     Indication: PRODUCT USED FOR UNKNOWN INDICATION
     Dosage: 75 MILLIGRAM
     Route: 065
  4. REPAGLINIDE. [Concomitant]
     Active Substance: REPAGLINIDE
     Dosage: 2 MILLIGRAM
     Route: 065
  5. FLUVASTATINE [FLUVASTATIN] [Concomitant]
     Indication: PRODUCT USED FOR UNKNOWN INDICATION
     Dosage: 80 MILLIGRAM
     Route: 065
  6. COUMADINE [Suspect]
     Active Substance: WARFARIN SODIUM
     Indication: THROMBOSIS PROPHYLAXIS
     Dosage: 1 MILLIGRAM, QHS
     Route: 048
     Dates: start: 201908
  7. EXOMUC [Concomitant]
     Active Substance: ACETYLCYSTEINE
     Indication: PRODUCT USED FOR UNKNOWN INDICATION
     Dosage: UNK
     Route: 065
  8. IBUPROFENE [Concomitant]
     Active Substance: IBUPROFEN
     Indication: PRODUCT USED FOR UNKNOWN INDICATION
     Dosage: UNK
     Route: 065
  9. SOTALOL BIOGARAN [Concomitant]
     Indication: PRODUCT USED FOR UNKNOWN INDICATION
     Dosage: 80 MILLIGRAM
     Route: 065
  10. AMLODIPINE [Concomitant]
     Active Substance: AMLODIPINE BESYLATE
     Indication: PRODUCT USED FOR UNKNOWN INDICATION
     Dosage: 5 MILLIGRAM
     Route: 065
  11. FUNGIZONE [Concomitant]
     Active Substance: AMPHOTERICIN B
     Indication: TONGUE DISORDER
     Dosage: UNK
     Route: 065
  12. COUMADINE [Suspect]
     Active Substance: WARFARIN SODIUM
     Dosage: 2 AND 2.5 TABLETS
     Route: 048
  13. DOLIPRAN [PARACETAMOL] [Concomitant]
     Indication: HEADACHE
     Dosage: UNK
     Route: 065
  14. REPAGLINIDE. [Concomitant]
     Active Substance: REPAGLINIDE
     Indication: PRODUCT USED FOR UNKNOWN INDICATION
     Dosage: 1 MILLIGRAM
     Route: 065

REACTIONS (3)
  - International normalised ratio abnormal [Unknown]
  - Tongue neoplasm malignant stage unspecified [Unknown]
  - Mouth ulceration [Unknown]
